FAERS Safety Report 23935676 (Version 5)
Quarter: 2024Q3

REPORT INFORMATION
  Report Type: Report from Study
  Country: CA (occurrence: CA)
  Receive Date: 20240604
  Receipt Date: 20240807
  Transmission Date: 20241017
  Serious: Yes (Hospitalization, Other)
  Sender: ROCHE
  Company Number: CA-ROCHE-2974537

PATIENT
  Age: 49 Year
  Sex: Female

DRUGS (3)
  1. OCREVUS [Suspect]
     Active Substance: OCRELIZUMAB
     Indication: Relapsing-remitting multiple sclerosis
     Dosage: 300 MG AT DAY 0 AND 14, THEN 600 MG EVERY 6 MONTH
     Route: 042
     Dates: start: 20180222
  2. DIPYRIDAMOLE [Concomitant]
     Active Substance: DIPYRIDAMOLE
  3. PREDNISONE [Concomitant]
     Active Substance: PREDNISONE

REACTIONS (7)
  - Respiratory tract infection [Unknown]
  - Bronchospasm [Unknown]
  - Anorectal disorder [Recovered/Resolved]
  - Gastrooesophageal reflux disease [Not Recovered/Not Resolved]
  - Secretion discharge [Not Recovered/Not Resolved]
  - Malaise [Not Recovered/Not Resolved]
  - Asthma [Unknown]

NARRATIVE: CASE EVENT DATE: 20211205
